FAERS Safety Report 6430735-0 (Version None)
Quarter: 2009Q4

REPORT INFORMATION
  Report Type: 
  Country: None (occurrence: None)
  Receive Date: 20091105
  Receipt Date: 20091105
  Transmission Date: 20100525
  Serious: Yes (Hospitalization)
  Sender: FDA-Public Use
  Company Number: None

PATIENT
  Sex: Female
  Weight: 73.6 kg

DRUGS (6)
  1. CISPLATIN 143 MG [Suspect]
     Dosage: 143 MG
  2. TAXOL [Suspect]
     Dosage: 372 MG
  3. HYDROCHLOROTHIAZIDE [Concomitant]
  4. LIPITOR [Concomitant]
  5. SANCTURA [Concomitant]
  6. SYNTHROID [Concomitant]

REACTIONS (2)
  - HAEMATEMESIS [None]
  - NAUSEA [None]
